FAERS Safety Report 23609280 (Version 1)
Quarter: 2024Q1

REPORT INFORMATION
  Report Type: Spontaneous
  Country: CN (occurrence: CN)
  Receive Date: 20240308
  Receipt Date: 20240308
  Transmission Date: 20240410
  Serious: Yes (Hospitalization, Other)
  Sender: FDA-Public Use
  Company Number: None

PATIENT
  Age: 2 Year
  Sex: Female
  Weight: 9.5 kg

DRUGS (7)
  1. CYCLOPHOSPHAMIDE [Suspect]
     Active Substance: CYCLOPHOSPHAMIDE
     Indication: Neuroblastoma
     Dosage: 432.5 MG (1000 MG/M2), ONE TIME IN ONE DAY, D1-2
     Route: 041
     Dates: start: 20240118, end: 20240119
  2. MESNA [Suspect]
     Active Substance: MESNA
     Indication: Prophylaxis
     Dosage: UNK, START DATE: FEB-2024
     Route: 065
  3. PIRARUBICIN HYDROCHLORIDE [Suspect]
     Active Substance: PIRARUBICIN HYDROCHLORIDE
     Indication: Neuroblastoma
     Dosage: 21.625 MG (50 MG/M2), ONE TIME IN ONE DAY, D1
     Route: 041
     Dates: start: 20240118, end: 20240118
  4. VINCRISTINE SULFATE [Suspect]
     Active Substance: VINCRISTINE SULFATE
     Indication: Neuroblastoma
     Dosage: 0.649 MG (1.5 MG/M2), ONE TIME IN ONE DAY, D1
     Route: 041
     Dates: start: 20240118, end: 20240118
  5. DEXRAZOXANE [Suspect]
     Active Substance: DEXRAZOXANE
     Indication: Cardiotoxicity
     Dosage: UNK, START DATE: FEB-2024
     Route: 065
  6. ONDANSETRON [Suspect]
     Active Substance: ONDANSETRON
     Indication: Vomiting
     Dosage: UNK, START DATE: FEB-2024
     Route: 065
  7. GLUTATHIONE [Suspect]
     Active Substance: GLUTATHIONE
     Indication: Prophylaxis
     Dosage: UNK, START DATE: FEB-2024
     Route: 065

REACTIONS (5)
  - Myelosuppression [Recovering/Resolving]
  - White blood cell count decreased [Unknown]
  - Platelet count decreased [Unknown]
  - Red blood cell count decreased [Unknown]
  - Pyrexia [Unknown]

NARRATIVE: CASE EVENT DATE: 20240220
